FAERS Safety Report 16726272 (Version 1)
Quarter: 2019Q3

REPORT INFORMATION
  Report Type: Spontaneous
  Country: CA (occurrence: CA)
  Receive Date: 20190821
  Receipt Date: 20190821
  Transmission Date: 20191005
  Serious: Yes (Hospitalization)
  Sender: FDA-Public Use
  Company Number: CA-EISAI MEDICAL RESEARCH-EC-2019-060938

PATIENT
  Age: 95 Year
  Sex: Female
  Weight: 37.64 kg

DRUGS (2)
  1. DONEPEZIL. [Suspect]
     Active Substance: DONEPEZIL
     Indication: PRODUCT USED FOR UNKNOWN INDICATION
     Dosage: DOSE AND FREQUENCY UNKNOWN
     Route: 048
  2. VITAMIN D [Concomitant]
     Active Substance: VITAMIN D NOS
     Indication: PRODUCT USED FOR UNKNOWN INDICATION
     Dosage: DOSE AND FREQUENCY UNKNOWN
     Route: 048

REACTIONS (4)
  - Personality change [Not Recovered/Not Resolved]
  - Amnesia [Not Recovered/Not Resolved]
  - Somnolence [Not Recovered/Not Resolved]
  - Gait disturbance [Not Recovered/Not Resolved]
